FAERS Safety Report 9062860 (Version 1)
Quarter: 2013Q1

REPORT INFORMATION
  Report Type: Spontaneous
  Country: AT (occurrence: AT)
  Receive Date: 20130213
  Receipt Date: 20130213
  Transmission Date: 20140127
  Serious: Yes (Hospitalization)
  Sender: FDA-Public Use
  Company Number: AT-PFIZER INC-2013054091

PATIENT
  Age: 69 Year
  Sex: Female

DRUGS (16)
  1. JANUVIA [Concomitant]
     Dosage: 100 MG, 1X/DAY
     Dates: start: 201211
  2. BLOPRESS [Concomitant]
     Dosage: UNK
     Dates: start: 201212
  3. CONCOR COR [Concomitant]
     Dosage: 5 MG, 1X/DAY
     Dates: start: 201212
  4. THROMBO ASS [Concomitant]
     Dosage: 100 MG, 1X/DAY
     Dates: start: 201212
  5. XANOR [Suspect]
     Dosage: 4 MG, 1X/DAY
     Dates: start: 20130114, end: 20130128
  6. LYRICA [Suspect]
     Dosage: 100 MG, 1X/DAY
     Dates: start: 20130121, end: 20130121
  7. LYRICA [Suspect]
     Dosage: 150 MG, 1X/DAY
     Dates: start: 20130122
  8. BURONIL [Suspect]
     Dosage: 100 MG, 1X/DAY
     Dates: start: 20130121, end: 20130124
  9. BURONIL [Suspect]
     Dosage: 50 MG, 1X/DAY
     Dates: start: 20130125, end: 20130125
  10. ZOFRAN [Suspect]
     Dosage: 8 MG, 1X/DAY
     Dates: start: 201212
  11. MOTILIUM [Suspect]
     Dosage: 40 MG, 1X/DAY
     Dates: start: 201212
  12. ZOLDEM [Concomitant]
     Dosage: 10 MG, 1X/DAY
     Dates: start: 201211
  13. MIRTABENE [Concomitant]
     Dosage: 30 MG, 1X/DAY
     Dates: start: 20130111, end: 20130114
  14. MIRTABENE [Concomitant]
     Dosage: 60 MG, 1X/DAY
     Dates: start: 20130115
  15. NEXIUM [Concomitant]
     Dosage: 40 MG, 1X/DAY
     Dates: start: 201211
  16. DIAMICRON MR [Concomitant]
     Dosage: 30 MG, 1X/DAY
     Dates: start: 201211

REACTIONS (2)
  - Extrapyramidal disorder [Recovered/Resolved]
  - Hyperprolactinaemia [Unknown]
